FAERS Safety Report 9465725 (Version 2)
Quarter: 2013Q3

REPORT INFORMATION
  Report Type: Spontaneous
  Country: US (occurrence: US)
  Receive Date: 20130820
  Receipt Date: 20130820
  Transmission Date: 20140515
  Serious: Yes (Other)
  Sender: FDA-Public Use
  Company Number: US-ASTELLAS-2012US012685

PATIENT
  Age: 79 Year
  Sex: Male

DRUGS (9)
  1. AMBISOME [Suspect]
     Indication: FUNGAL INFECTION
     Dosage: UNK
     Route: 042
     Dates: start: 201210
  2. ACETAMINOPHEN W/CODEINE [Concomitant]
     Indication: PAIN
     Dosage: UNK
     Route: 048
     Dates: start: 20121026
  3. ASPIRIN [Concomitant]
     Indication: THROMBOSIS
     Dosage: 81-325 MG
     Route: 048
     Dates: start: 20070815, end: 20121220
  4. GLYBURIDE [Concomitant]
     Indication: TYPE 2 DIABETES MELLITUS
     Dosage: 5 UNK, UNKNOWN/D
     Route: 048
     Dates: start: 20070805
  5. CHOLECALCIFEROL [Concomitant]
     Indication: VITAMIN D DEFICIENCY
     Dosage: 800 U, UNKNOWN/D
     Route: 048
     Dates: start: 20071205
  6. INSULIN GLARGINE [Concomitant]
     Indication: TYPE 2 DIABETES MELLITUS
     Dosage: 15-18 U
     Route: 058
     Dates: start: 20071126, end: 20121226
  7. INSULIN LISPRO [Concomitant]
     Indication: TYPE 2 DIABETES MELLITUS
     Dosage: 100 U/ML
     Route: 058
     Dates: start: 20071205
  8. METOPROLOL [Concomitant]
     Indication: HYPERTENSION
     Dosage: 50 MG, UNKNOWN/D
     Route: 048
     Dates: start: 20070727, end: 20121106
  9. PRAVASTATIN [Concomitant]
     Indication: HYPERCHOLESTEROLAEMIA
     Dosage: 20 MG, UNKNOWN/D
     Route: 048
     Dates: start: 20100315, end: 20121226

REACTIONS (1)
  - Renal failure acute [Recovering/Resolving]
